FAERS Safety Report 7924706-2 (Version None)
Quarter: 2011Q4

REPORT INFORMATION
  Report Type: 
  Country: None (occurrence: None)
  Receive Date: 20111118
  Receipt Date: 20110325
  Transmission Date: 20120403
  Serious: Yes (Hospitalization)
  Sender: FDA-Public Use
  Company Number: US-AMGEN-USASP2011016208

PATIENT
  Sex: Female

DRUGS (2)
  1. METHOTREXATE [Concomitant]
  2. ENBREL [Suspect]
     Indication: ANKYLOSING SPONDYLITIS
     Dosage: 50 MG, QWK
     Dates: end: 20110301

REACTIONS (1)
  - B-CELL LYMPHOMA [None]
